FAERS Safety Report 4390140-8 (Version None)
Quarter: 2004Q2

REPORT INFORMATION
  Report Type: 
  Country: None (occurrence: None)
  Receive Date: 20040630
  Receipt Date: 20040618
  Transmission Date: 20050107
  Serious: Yes (Hospitalization)
  Sender: FDA-Public Use
  Company Number: FR-JNJFOC-20040604697

PATIENT
  Age: 22 Year
  Sex: Female

DRUGS (2)
  1. RISPERIDAL (RISPERIDONE) TABELTS [Suspect]
     Indication: DRUG USE FOR UNKNOWN INDICATION
     Dosage: 2 MG, IN 1 DAY, ORAL
     Route: 048
     Dates: start: 20040410, end: 20040418
  2. SEROPRAM (CITALOPRAM HYDROBROMIDE) [Suspect]
     Indication: DEPRESSION
     Dosage: 20 MG, IN 1 DAY; ORAL
     Route: 048

REACTIONS (9)
  - ANURIA [None]
  - CONFUSIONAL STATE [None]
  - CONVULSION [None]
  - DRUG INTERACTION [None]
  - LOSS OF CONSCIOUSNESS [None]
  - MALAISE [None]
  - RESPIRATION ABNORMAL [None]
  - SINUS TACHYCARDIA [None]
  - TONGUE INJURY [None]
